FAERS Safety Report 6634852-1 (Version None)
Quarter: 2010Q1

REPORT INFORMATION
  Report Type: 
  Country: None (occurrence: None)
  Receive Date: 20100311
  Receipt Date: 20100311
  Transmission Date: 20100710
  Serious: Yes (Death)
  Sender: FDA-Public Use
  Company Number: None

PATIENT
  Sex: Female
  Weight: 41 kg

DRUGS (2)
  1. TARCEVA [Suspect]
  2. 5-AZACYTIDINE -VIDAZA- [Suspect]

REACTIONS (6)
  - ATRIAL FIBRILLATION [None]
  - DEEP VEIN THROMBOSIS [None]
  - HAEMOPTYSIS [None]
  - PLATELET COUNT INCREASED [None]
  - PULMONARY EMBOLISM [None]
  - RESPIRATORY FAILURE [None]
